FAERS Safety Report 10186438 (Version 1)
Quarter: 2014Q2

REPORT INFORMATION
  Report Type: Spontaneous
  Country: US (occurrence: US)
  Receive Date: 20140521
  Receipt Date: 20140521
  Transmission Date: 20141212
  Serious: No
  Sender: FDA-Public Use
  Company Number: US-ASTRAZENECA-2013SE60478

PATIENT
  Age: 85 Year
  Sex: Female
  Weight: 68 kg

DRUGS (4)
  1. PULMICORT FLEXHALER [Suspect]
     Indication: ASTHMA
     Dosage: 180 MCG BID
     Route: 055
     Dates: start: 201305
  2. PULMICORT FLEXHALER [Suspect]
     Indication: BRONCHITIS
     Dosage: 180 MCG BID
     Route: 055
     Dates: start: 201305
  3. PULMICORT FLEXHALER [Suspect]
     Indication: CHRONIC OBSTRUCTIVE PULMONARY DISEASE
     Dosage: 180 MCG BID
     Route: 055
     Dates: start: 201305
  4. NEBULIZER [Concomitant]

REACTIONS (4)
  - Fungal skin infection [Not Recovered/Not Resolved]
  - Cough [Unknown]
  - Drug prescribing error [Unknown]
  - Drug dose omission [Unknown]
